FAERS Safety Report 9706870 (Version 1)
Quarter: 2013Q4

REPORT INFORMATION
  Report Type: Report from Study
  Country: CA (occurrence: CA)
  Receive Date: 20131125
  Receipt Date: 20131125
  Transmission Date: 20140711
  Serious: Yes (Hospitalization)
  Sender: FDA-Public Use
  Company Number: CA-JNJFOC-20131113105

PATIENT
  Age: 52 Year
  Sex: Female
  Weight: 69.6 kg

DRUGS (4)
  1. REMICADE [Suspect]
     Indication: COLITIS ULCERATIVE
     Route: 042
     Dates: start: 20120726
  2. CLONAZEPAM [Concomitant]
     Route: 065
  3. FOLIC ACID [Concomitant]
     Route: 065
  4. EFFEXOR [Concomitant]
     Route: 065

REACTIONS (3)
  - Intestinal operation [Recovered/Resolved]
  - Hysterectomy [Recovered/Resolved]
  - Bladder operation [Recovered/Resolved]
